FAERS Safety Report 23393997 (Version 1)
Quarter: 2024Q1

REPORT INFORMATION
  Report Type: Spontaneous
  Country: US (occurrence: US)
  Receive Date: 20240111
  Receipt Date: 20240111
  Transmission Date: 20240410
  Serious: No
  Sender: FDA-Public Use
  Company Number: US-Dermavant-000943

PATIENT
  Age: 51 Year
  Sex: Female

DRUGS (2)
  1. TAPINAROF [Suspect]
     Active Substance: TAPINAROF
     Indication: Psoriasis
     Dosage: ENTIRE LEGS AND BUTTOCKS
     Route: 061
     Dates: start: 202311
  2. PROTOPIC [Concomitant]
     Active Substance: TACROLIMUS

REACTIONS (2)
  - Diarrhoea [Not Recovered/Not Resolved]
  - Folliculitis [Not Recovered/Not Resolved]

NARRATIVE: CASE EVENT DATE: 20231101
